FAERS Safety Report 6177764-2 (Version None)
Quarter: 2009Q2

REPORT INFORMATION
  Report Type: 
  Country: None (occurrence: None)
  Receive Date: 20090504
  Receipt Date: 20090203
  Transmission Date: 20091009
  Serious: No
  Sender: FDA-Public Use
  Company Number: US-ALEXION-A200800423

PATIENT
  Sex: Male

DRUGS (14)
  1. SOLIRIS [Suspect]
     Indication: PAROXYSMAL NOCTURNAL HAEMOGLOBINURIA
     Dosage: 600 MG, QW
     Route: 042
     Dates: start: 20070606, end: 20070627
  2. SOLIRIS [Suspect]
     Dosage: 900 MG, Q2W
     Route: 042
     Dates: start: 20070703
  3. ISOSORBIDE [Concomitant]
     Indication: CARDIAC DISORDER
     Dosage: UNK
     Route: 048
  4. FOLIC ACID [Concomitant]
     Dosage: UNK
     Route: 048
  5. NITROGLYCERIN [Concomitant]
     Indication: CARDIAC DISORDER
     Dosage: UNK
     Route: 048
  6. DESFERAL                           /00062903/ [Concomitant]
     Indication: IRON OVERLOAD
     Dosage: 3XWEEK
  7. METOPROLOL TARTRATE [Concomitant]
     Indication: CARDIAC DISORDER
     Dosage: UNK
     Route: 048
  8. ASPIRIN [Concomitant]
     Indication: CARDIAC DISORDER
     Dosage: UNK
     Route: 048
  9. VITAMIN B12                        /00056201/ [Concomitant]
     Dosage: UNK
     Route: 048
  10. SENOKOT                            /00142201/ [Concomitant]
     Dosage: UNK
     Route: 048
  11. LIPITOR [Concomitant]
     Dosage: UNK
     Route: 048
  12. VITAMIN A [Concomitant]
     Dosage: 5000 UT, QW
     Route: 048
  13. TYLENOL (CAPLET) [Concomitant]
     Dosage: UNK
     Route: 048
  14. POTASSIUM CHLORIDE [Concomitant]
     Dosage: UNK
     Route: 048

REACTIONS (1)
  - ABDOMINAL DISCOMFORT [None]
